FAERS Safety Report 11008031 (Version 1)
Quarter: 2015Q2

REPORT INFORMATION
  Report Type: Spontaneous
  Country: GR (occurrence: GR)
  Receive Date: 20150410
  Receipt Date: 20150410
  Transmission Date: 20150821
  Serious: Yes (Life-Threatening, Hospitalization, Other)
  Sender: FDA-Public Use
  Company Number: GR-AMGEN-GRCSP2015033815

PATIENT
  Age: 58 Year
  Sex: Male

DRUGS (7)
  1. NEXIUM [Concomitant]
     Active Substance: ESOMEPRAZOLE MAGNESIUM
     Dosage: UNK
  2. SEROQUEL [Concomitant]
     Active Substance: QUETIAPINE FUMARATE
     Indication: ALCOHOLISM
     Dosage: CHRONIC THERAPY
  3. CRESTOR [Concomitant]
     Active Substance: ROSUVASTATIN CALCIUM
     Indication: HYPERCHOLESTEROLAEMIA
     Dosage: CHRONIC THERAPY
  4. REMERON [Concomitant]
     Active Substance: MIRTAZAPINE
     Indication: ALCOHOLISM
     Dosage: CHRONIC THERAPY
  5. ENBREL [Suspect]
     Active Substance: ETANERCEPT
     Indication: ANKYLOSING SPONDYLITIS
     Dosage: 50 MG, WEEKLY
     Route: 065
     Dates: start: 2007, end: 201412
  6. TAVOR [Concomitant]
     Active Substance: LORAZEPAM
     Indication: ALCOHOLISM
     Dosage: CHRONIC THERAPY
  7. ZYLORIC [Concomitant]
     Active Substance: ALLOPURINOL
     Indication: BLOOD URIC ACID INCREASED
     Dosage: CHRONIC THERAPY

REACTIONS (1)
  - Prostate cancer [Recovered/Resolved]
